FAERS Safety Report 4553918-3 (Version None)
Quarter: 2005Q1

REPORT INFORMATION
  Report Type: 
  Country: None (occurrence: None)
  Receive Date: 20050113
  Receipt Date: 20050113
  Transmission Date: 20050727
  Serious: No
  Sender: FDA-Public Use
  Company Number: None

PATIENT
  Age: 23 Year
  Sex: Female
  Weight: 63.5036 kg

DRUGS (1)
  1. DEPO-PROVERA [Suspect]
     Indication: CONTRACEPTION
     Dosage: 1 SHOT EVERY 3 MONTHS

REACTIONS (6)
  - AGGRESSION [None]
  - HAIR COLOUR CHANGES [None]
  - IRRITABILITY [None]
  - MENORRHAGIA [None]
  - SCOLIOSIS [None]
  - WEIGHT INCREASED [None]
